FAERS Safety Report 8617088-4 (Version None)
Quarter: 2012Q3

REPORT INFORMATION
  Report Type: 
  Country: None (occurrence: None)
  Receive Date: 20120823
  Receipt Date: 20120820
  Transmission Date: 20120928
  Serious: No
  Sender: FDA-Public Use
  Company Number: US-009507513-1208USA008458

PATIENT

DRUGS (3)
  1. VICTRELIS [Suspect]
     Route: 048
  2. PEG-INTRON [Suspect]
     Indication: HEPATITIS C
     Dosage: 150 MICROGRAM, QW
     Route: 058
     Dates: start: 20120818
  3. REBETOL [Suspect]
     Route: 048

REACTIONS (5)
  - INJECTION SITE PAIN [None]
  - CHEST PAIN [None]
  - ABDOMINAL PAIN LOWER [None]
  - HYPERHIDROSIS [None]
  - CHILLS [None]
